FAERS Safety Report 5819422-7 (Version None)
Quarter: 2008Q3

REPORT INFORMATION
  Report Type: 
  Country: None (occurrence: None)
  Receive Date: 20080723
  Receipt Date: 20080715
  Transmission Date: 20090109
  Serious: Yes (Hospitalization)
  Sender: FDA-Public Use
  Company Number: GR-BAYER-200612909GDS

PATIENT
  Age: 74 Year
  Sex: Male
  Weight: 73 kg

DRUGS (11)
  1. SORAFENIB [Suspect]
     Indication: HEPATIC NEOPLASM MALIGNANT
     Dosage: TOTAL DAILY DOSE: 400 MG
     Route: 048
     Dates: start: 20060328, end: 20060414
  2. SORAFENIB [Suspect]
     Dosage: TOTAL DAILY DOSE: 400 MG
     Route: 048
     Dates: start: 20060515, end: 20060610
  3. SORAFENIB [Suspect]
     Dosage: TOTAL DAILY DOSE: 400 MG
     Route: 048
     Dates: start: 20060213, end: 20060328
  4. LASIX [Concomitant]
     Indication: CARDIAC FAILURE
     Route: 048
     Dates: start: 20000101
  5. DIGOXIN [Concomitant]
     Indication: CARDIAC FAILURE
     Route: 048
     Dates: start: 20000101
  6. SOLOSA [Concomitant]
     Indication: DIABETES MELLITUS
     Route: 048
     Dates: start: 20030101, end: 20060328
  7. DILATREND [Concomitant]
     Indication: CARDIAC FAILURE
     Route: 048
     Dates: start: 20000101
  8. SEREVENT - FLIXOTIDE 250MG [Concomitant]
     Indication: CHRONIC OBSTRUCTIVE PULMONARY DISEASE
     Route: 055
     Dates: start: 20020101
  9. AVANDIA [Concomitant]
     Indication: DIABETES MELLITUS
     Route: 048
     Dates: start: 20030101, end: 20060328
  10. SPIRIVA [Concomitant]
     Indication: CHRONIC OBSTRUCTIVE PULMONARY DISEASE
     Route: 055
     Dates: start: 20020101
  11. DIPEN [Concomitant]
     Indication: CARDIAC FAILURE
     Route: 048
     Dates: start: 20060101

REACTIONS (1)
  - ARTHRALGIA [None]
